FAERS Safety Report 9513914 (Version 1)
Quarter: 2013Q3

REPORT INFORMATION
  Report Type: Spontaneous
  Country: US (occurrence: US)
  Receive Date: 20130910
  Receipt Date: 20130910
  Transmission Date: 20140515
  Serious: Yes (Hospitalization)
  Sender: FDA-Public Use
  Company Number: US-PERRIGO-13US009073

PATIENT
  Sex: 0

DRUGS (2)
  1. LANSOPRAZOLE 15 MG 3T3 [Suspect]
     Indication: DRUG LEVEL
     Dosage: 60 MG; DAYS 14 AND 15
     Route: 048
  2. BOSUTINIB [Suspect]
     Indication: DRUG LEVEL
     Dosage: 400 MG; DAYS 1 AND 15
     Route: 048

REACTIONS (5)
  - Diverticulitis [Recovering/Resolving]
  - Gastritis [Recovering/Resolving]
  - Duodenitis [Recovering/Resolving]
  - Pyrexia [Recovered/Resolved]
  - Chills [Recovered/Resolved]
